FAERS Safety Report 7269381-8 (Version None)
Quarter: 2011Q1

REPORT INFORMATION
  Report Type: 
  Country: None (occurrence: None)
  Receive Date: 20110125
  Receipt Date: 20110112
  Transmission Date: 20110831
  Serious: Yes (Life-Threatening, Congenital Anomaly)
  Sender: FDA-Public Use
  Company Number: 1000017827

PATIENT
  Sex: Male
  Weight: 3 kg

DRUGS (1)
  1. ESCITALOPRAM [Suspect]
     Dosage: 10 MG (10 MG, 1 N 1 D), TRANSPLACENTAL
     Route: 064

REACTIONS (4)
  - EPIDERMOLYSIS [None]
  - HYPOGLYCAEMIA NEONATAL [None]
  - MATERNAL DRUGS AFFECTING FOETUS [None]
  - TRAUMATIC HAEMATOMA [None]
